FAERS Safety Report 4510187-8 (Version None)
Quarter: 2004Q4

REPORT INFORMATION
  Report Type: 
  Country: None (occurrence: None)
  Receive Date: 20041119
  Receipt Date: 20041102
  Transmission Date: 20050328
  Serious: Yes (Disabling)
  Sender: FDA-Public Use
  Company Number: ZONI002042

PATIENT
  Age: 52 Year
  Sex: Female

DRUGS (4)
  1. EXCEGRAN (ZONISAMIDE) [Suspect]
     Indication: BRAIN NEOPLASM
     Dosage: 200 MG, 2 IN 1 D, ORAL
     Route: 048
     Dates: start: 20040827, end: 20041027
  2. THEO-DUR [Suspect]
     Indication: ASTHMA
     Dosage: SEE IMAGE
     Route: 048
     Dates: start: 20030101, end: 20040930
  3. THEO-DUR [Suspect]
     Indication: ASTHMA
     Dosage: SEE IMAGE
     Route: 048
     Dates: start: 20041001
  4. DEPAKENE [Concomitant]

REACTIONS (3)
  - DRUG TOXICITY [None]
  - NAUSEA [None]
  - VOMITING [None]
